FAERS Safety Report 14271602 (Version 2)
Quarter: 2018Q3

REPORT INFORMATION
  Report Type: Spontaneous
  Country: ZA (occurrence: ZA)
  Receive Date: 20171211
  Receipt Date: 20180724
  Transmission Date: 20181010
  Serious: Yes (Other)
  Sender: FDA-Public Use
  Company Number: ZA-SA-2017SA241940

PATIENT
  Age: 77 Year
  Sex: Female
  Weight: 60 kg

DRUGS (7)
  1. AZT [Suspect]
     Active Substance: ZIDOVUDINE
     Dosage: UNK UNK,UNK
     Route: 065
     Dates: start: 2010
  2. METHOTREXATE. [Suspect]
     Active Substance: METHOTREXATE
     Dosage: 25 MG,QW
     Route: 065
     Dates: start: 2000, end: 2006
  3. ENBREL [Concomitant]
     Active Substance: ETANERCEPT
     Dosage: 50 MG,QW
     Route: 058
     Dates: start: 201012
  4. GOLD [Suspect]
     Active Substance: GOLD
     Dosage: UNK UNK,UNK
     Route: 065
     Dates: start: 1981, end: 2000
  5. SALAZOPYRIN [Suspect]
     Active Substance: SULFASALAZINE
     Dosage: 1 G,BID
     Route: 065
     Dates: start: 2000, end: 2006
  6. CHLOROQUINE. [Suspect]
     Active Substance: CHLOROQUINE
     Dosage: 200 MG,QD
     Route: 048
     Dates: start: 1981, end: 2000
  7. ARAVA [Suspect]
     Active Substance: LEFLUNOMIDE
     Dosage: 20 MG,QD
     Route: 048
     Dates: start: 2006, end: 2010

REACTIONS (4)
  - Bronchiolitis [Recovering/Resolving]
  - Dyslipidaemia [Unknown]
  - Deformity [Unknown]
  - Maculopathy [Unknown]

NARRATIVE: CASE EVENT DATE: 2010
